FAERS Safety Report 6393073-0 (Version None)
Quarter: 2009Q4

REPORT INFORMATION
  Report Type: 
  Country: None (occurrence: None)
  Receive Date: 20091008
  Receipt Date: 20090929
  Transmission Date: 20100525
  Serious: Yes (Other)
  Sender: FDA-Public Use
  Company Number: US-ROCHE-651816

PATIENT
  Age: 54 Year
  Sex: Female

DRUGS (1)
  1. BONIVA [Suspect]
     Indication: OSTEOPOROSIS
     Dosage: MISSED DOSE ON 15 AUGUST 2009.
     Route: 048
     Dates: start: 20081101

REACTIONS (10)
  - BONE FRAGMENTATION [None]
  - FOOT FRACTURE [None]
  - FRACTURE [None]
  - GINGIVAL RECESSION [None]
  - HEADACHE [None]
  - HYPERTENSION [None]
  - IMPAIRED HEALING [None]
  - JAW DISORDER [None]
  - TOOTH EXTRACTION [None]
  - VOMITING [None]
